FAERS Safety Report 25820159 (Version 1)
Quarter: 2025Q3

REPORT INFORMATION
  Report Type: Spontaneous
  Country: RU (occurrence: RU)
  Receive Date: 20250919
  Receipt Date: 20250919
  Transmission Date: 20251020
  Serious: Yes (Hospitalization)
  Sender: PHARMOBEDIENT CONSULTING, LLC
  Company Number: RU-Pharmobedient-000221

PATIENT
  Age: 47 Year
  Sex: Male

DRUGS (3)
  1. CISPLATIN [Suspect]
     Active Substance: CISPLATIN
     Indication: Colorectal cancer
     Dates: start: 2023
  2. LEUCOVORIN [Suspect]
     Active Substance: LEUCOVORIN\LEUCOVORIN CALCIUM
     Indication: Colorectal cancer
     Dates: start: 2023
  3. FLUOROURACIL [Suspect]
     Active Substance: FLUOROURACIL
     Indication: Colorectal cancer
     Dates: start: 2023

REACTIONS (7)
  - Diarrhoea [Unknown]
  - Gastrointestinal sounds abnormal [Recovered/Resolved]
  - Abdominal distension [Recovered/Resolved]
  - Visual impairment [Recovered/Resolved]
  - Abdominal pain [Unknown]
  - Mucosal inflammation [Unknown]
  - Nausea [Recovered/Resolved]
